FAERS Safety Report 5598435-7 (Version None)
Quarter: 2008Q1

REPORT INFORMATION
  Report Type: 
  Country: None (occurrence: None)
  Receive Date: 20080122
  Receipt Date: 20080114
  Transmission Date: 20080703
  Serious: Yes (Hospitalization, Congenital Anomaly)
  Sender: FDA-Public Use
  Company Number: FR-ASTRAZENECA-2008CG00069

PATIENT
  Age: 0 Day
  Sex: Female
  Weight: 1.1 kg

DRUGS (4)
  1. TENORMIN [Suspect]
     Route: 064
     Dates: end: 20061212
  2. LOVENOX [Suspect]
     Route: 064
     Dates: start: 20060603, end: 20061212
  3. PREVISCAN [Concomitant]
     Route: 064
     Dates: end: 20060603
  4. CIPRALAN [Concomitant]
     Route: 064
     Dates: end: 20060603

REACTIONS (6)
  - APNOEA [None]
  - ATRIAL SEPTAL DEFECT [None]
  - BRADYCARDIA [None]
  - CONGENITAL ANOMALY [None]
  - FOETAL GROWTH RETARDATION [None]
  - PREMATURE BABY [None]
